FAERS Safety Report 5067190-1 (Version None)
Quarter: 2006Q3

REPORT INFORMATION
  Report Type: 
  Country: None (occurrence: None)
  Receive Date: 20060727
  Receipt Date: 20060713
  Transmission Date: 20061208
  Serious: Yes (Other)
  Sender: FDA-Public Use
  Company Number: PHHO2006JP10028

PATIENT
  Age: 61 Year
  Sex: Male
  Weight: 65.0005 kg

DRUGS (3)
  1. VISUDYNE [Suspect]
     Indication: MACULAR DEGENERATION
     Dosage: 6 MG/M^2 ONCE IV
     Route: 042
     Dates: start: 20050106, end: 20050106
  2. SOLANTAL [Concomitant]
     Indication: CHOROIDAL NEOVASCULARISATION
  3. CYANOCOBALAMIN [Concomitant]

REACTIONS (5)
  - CONDITION AGGRAVATED [None]
  - EYE HAEMORRHAGE [None]
  - FIBROSIS [None]
  - MACULAR OEDEMA [None]
  - VISUAL ACUITY REDUCED [None]
